FAERS Safety Report 21097055 (Version 1)
Quarter: 2022Q3

REPORT INFORMATION
  Report Type: Spontaneous
  Country: DE (occurrence: DE)
  Receive Date: 20220719
  Receipt Date: 20220719
  Transmission Date: 20221026
  Serious: Yes (Other)
  Sender: FDA-Public Use
  Company Number: DE-CELLTRION INC.-2022DE011127

PATIENT

DRUGS (9)
  1. ADALIMUMAB [Suspect]
     Active Substance: ADALIMUMAB
     Indication: Arthritis
     Dosage: UNK
  2. RITUXIMAB [Suspect]
     Active Substance: RITUXIMAB
     Indication: Blindness
  3. RITUXIMAB [Suspect]
     Active Substance: RITUXIMAB
     Indication: Congenital ectodermal dysplasia
  4. ETANERCEPT [Suspect]
     Active Substance: ETANERCEPT
     Indication: Arthritis
  5. USTEKINUMAB [Concomitant]
     Active Substance: USTEKINUMAB
  6. METHOTREXATE [Concomitant]
     Active Substance: METHOTREXATE
  7. BARICITINIB [Concomitant]
     Active Substance: BARICITINIB
  8. TOFACITINIB [Concomitant]
     Active Substance: TOFACITINIB
     Dosage: 5 MG EVERY 0.5 DAY
  9. SULFASALAZINE [Concomitant]
     Active Substance: SULFASALAZINE

REACTIONS (5)
  - Hypogammaglobulinaemia [Unknown]
  - Infection [Unknown]
  - Drug ineffective [Unknown]
  - Therapeutic product effect decreased [Unknown]
  - Off label use [Unknown]
